FAERS Safety Report 14632475 (Version 1)
Quarter: 2018Q1

REPORT INFORMATION
  Report Type: Report from Study
  Country: US (occurrence: US)
  Receive Date: 20180313
  Receipt Date: 20180313
  Transmission Date: 20180509
  Serious: No
  Sender: FDA-Public Use
  Company Number: PHEH2018US009901

PATIENT
  Age: 8 Month
  Sex: Male
  Weight: 4.44 kg

DRUGS (1)
  1. OMNITROPE [Suspect]
     Active Substance: SOMATROPIN
     Indication: HYPOPITUITARISM
     Dosage: 0.2 MG, QD
     Route: 058
     Dates: start: 20130719

REACTIONS (2)
  - Faeces discoloured [Unknown]
  - Dyschezia [Unknown]

NARRATIVE: CASE EVENT DATE: 20140401
